FAERS Safety Report 12061879 (Version 1)
Quarter: 2016Q1

REPORT INFORMATION
  Report Type: Report from Study
  Country: US (occurrence: US)
  Receive Date: 20160210
  Receipt Date: 20160210
  Transmission Date: 20160526
  Serious: Yes (Death, Life-Threatening, Hospitalization)
  Sender: FDA-Public Use
  Company Number: US-ASTELLAS-2016US004904

PATIENT
  Age: 60 Year
  Sex: Male

DRUGS (3)
  1. BEVACIZUMAB [Suspect]
     Active Substance: BEVACIZUMAB
     Indication: PANCREATIC CARCINOMA
     Dosage: 10 MG/KG, CYCLIC (CYCLE 1: GIVEN OVER 60-90 MIN ON DAY 1 AND 15, CYCLE 2: GIVEN OVER 30-90 MIN)
     Route: 042
  2. GEMCITABINE [Suspect]
     Active Substance: GEMCITABINE\GEMCITABINE HYDROCHLORIDE
     Indication: PANCREATIC CARCINOMA
     Dosage: 1000 MG/M2, CYCLIC (GIVEN OVER 30 MIN ON DAYS 1, 8 AND 15 OF EACH 28 DAY CYCLE, PERSISTENT 28 DAYS)
     Route: 042
     Dates: start: 20061012
  3. ERLOTINIB [Suspect]
     Active Substance: ERLOTINIB
     Indication: PANCREATIC CARCINOMA
     Dosage: 150 MG, CYCLIC (GIVEN ON DAYS 1-5, 8-12 AND 15-26 OF EACH 28 DAY CYCLE)
     Route: 048
     Dates: start: 20061012

REACTIONS (4)
  - Disease progression [Unknown]
  - Death [Fatal]
  - Depression [Not Recovered/Not Resolved]
  - Hyperbilirubinaemia [Unknown]

NARRATIVE: CASE EVENT DATE: 20061204
